FAERS Safety Report 22181244 (Version 2)
Quarter: 2023Q2

REPORT INFORMATION
  Report Type: Spontaneous
  Country: US (occurrence: US)
  Receive Date: 20230406
  Receipt Date: 20230411
  Transmission Date: 20230722
  Serious: Yes (Death, Life-Threatening, Hospitalization, Other)
  Sender: FDA-Public Use
  Company Number: US-MLMSERVICE-20230324-4188665-1

PATIENT
  Age: 64 Year
  Sex: Male

DRUGS (12)
  1. METHYLPREDNISOLONE [Suspect]
     Active Substance: METHYLPREDNISOLONE
     Indication: Immunosuppressant drug therapy
     Dosage: INDUCTION
  2. METHYLPREDNISOLONE [Suspect]
     Active Substance: METHYLPREDNISOLONE
     Dosage: REDUCED
  3. METHYLPREDNISOLONE [Suspect]
     Active Substance: METHYLPREDNISOLONE
     Dosage: TAPERED BY 10% EVERY 5 DAYS
  4. METHYLPREDNISOLONE [Suspect]
     Active Substance: METHYLPREDNISOLONE
     Dosage: ON DAYS 24 AND 25, AT 1000 MG/D (10 MG/KG PER DAY)
  5. METHOTREXATE SODIUM [Suspect]
     Active Substance: METHOTREXATE SODIUM
     Indication: Prophylaxis against graft versus host disease
     Dosage: UNK
  6. TACROLIMUS [Suspect]
     Active Substance: TACROLIMUS
     Indication: Immunosuppressant drug therapy
     Dosage: ADJUSTED TO TARGET A LEVEL OF 10 NG/ML
  7. TACROLIMUS [Suspect]
     Active Substance: TACROLIMUS
     Dosage: MAINTENANCE
  8. LAPINE T-LYMPHOCYTE IMMUNE GLOBULIN [Suspect]
     Active Substance: LAPINE T-LYMPHOCYTE IMMUNE GLOBULIN
     Indication: Immunosuppressant drug therapy
     Dosage: INDUCTION
  9. CYCLOPHOSPHAMIDE [Suspect]
     Active Substance: CYCLOPHOSPHAMIDE
     Indication: Bone marrow conditioning regimen
     Dosage: 50 MG/KG, SINGLE ON DAY 26
  10. FLUDARABINE [Suspect]
     Active Substance: FLUDARABINE PHOSPHATE
     Indication: Bone marrow conditioning regimen
     Dosage: UNK
  11. MESNA [Concomitant]
     Active Substance: MESNA
     Dosage: ON DAY 131
  12. ELTROMBOPAG [Concomitant]
     Active Substance: ELTROMBOPAG
     Indication: Pancytopenia
     Dosage: ON DAY 131

REACTIONS (1)
  - Pneumonia bacterial [Fatal]
